FAERS Safety Report 9742612 (Version 3)
Quarter: 2015Q3

REPORT INFORMATION
  Report Type: Spontaneous
  Country: US (occurrence: US)
  Receive Date: 20131210
  Receipt Date: 20150804
  Transmission Date: 20151125
  Serious: No
  Sender: FDA-Public Use
  Company Number: US-GILEAD-2009-0024707

PATIENT
  Age: 56 Year
  Sex: Male
  Weight: 83.91 kg

DRUGS (11)
  1. VITAMIN B1 [Concomitant]
     Active Substance: THIAMINE HYDROCHLORIDE
  2. LETAIRIS [Suspect]
     Active Substance: AMBRISENTAN
     Indication: PULMONARY ARTERIAL HYPERTENSION
     Route: 048
     Dates: start: 20090724
  3. FOLIC ACID. [Concomitant]
     Active Substance: FOLIC ACID
  4. DEMECLOCYCLINE [Concomitant]
     Active Substance: DEMECLOCYCLINE
  5. OMEPRAZOLE. [Concomitant]
     Active Substance: OMEPRAZOLE
  6. SENNA-C [Concomitant]
  7. ASPIRIN. [Concomitant]
     Active Substance: ASPIRIN
  8. FUROSEMIDE. [Concomitant]
     Active Substance: FUROSEMIDE
  9. VIAGRA [Concomitant]
     Active Substance: SILDENAFIL CITRATE
  10. GABAPENTIN. [Concomitant]
     Active Substance: GABAPENTIN
  11. MORPHINE [Concomitant]
     Active Substance: MORPHINE

REACTIONS (3)
  - Fatigue [Unknown]
  - Sinus congestion [Unknown]
  - Asthenia [Unknown]
